FAERS Safety Report 5035286-6 (Version None)
Quarter: 2006Q2

REPORT INFORMATION
  Report Type: 
  Country: None (occurrence: None)
  Receive Date: 20060627
  Receipt Date: 20060619
  Transmission Date: 20061013
  Serious: Yes (Other)
  Sender: FDA-Public Use
  Company Number: 2006UW13008

PATIENT
  Age: 25 Year
  Sex: Male
  Weight: 74.8 kg

DRUGS (8)
  1. SEROQUEL [Suspect]
     Indication: BIPOLAR I DISORDER
     Route: 048
     Dates: start: 20020101
  2. LITHIUM CARBONATE [Concomitant]
  3. LEVOTHYROXINE SODIUM [Concomitant]
  4. BENECAR [Concomitant]
  5. DESMOPRESSIN [Concomitant]
  6. CLONIPINE [Concomitant]
  7. DYNACIRC CR [Concomitant]
  8. NEURONTIN [Concomitant]

REACTIONS (2)
  - ENURESIS [None]
  - SUICIDAL IDEATION [None]
